FAERS Safety Report 6030261-7 (Version None)
Quarter: 2009Q1

REPORT INFORMATION
  Report Type: 
  Country: None (occurrence: None)
  Receive Date: 20090105
  Receipt Date: 20090105
  Transmission Date: 20090719
  Serious: Yes (Other)
  Sender: FDA-Public Use
  Company Number: None

PATIENT
  Age: 35 Year
  Sex: Female
  Weight: 63.5036 kg

DRUGS (1)
  1. CLOMID [Suspect]
     Indication: INFERTILITY
     Dosage: 50MG ONCE/DAY 5 DAYS PO
     Route: 048
     Dates: start: 20081209, end: 20081213

REACTIONS (1)
  - ALOPECIA [None]
